FAERS Safety Report 22266750 (Version 16)
Quarter: 2023Q4

REPORT INFORMATION
  Report Type: Report from Study
  Country: CN (occurrence: None)
  Receive Date: 20230428
  Receipt Date: 20231125
  Transmission Date: 20240109
  Serious: Yes (Death, Life-Threatening, Hospitalization)
  Sender: FDA-Public Use
  Company Number: CN-ROCHE-3332403

PATIENT
  Age: 39 Year
  Sex: Female
  Weight: 52 kg

DRUGS (71)
  1. PLACEBO [Suspect]
     Active Substance: UNSPECIFIED INGREDIENT
     Indication: Lupus nephritis
     Dosage: START DATE OF MOST RECENT DOSE (250 ML) OF STUDY DRUG PRIOR TO AE/SAE: 24/FEB/2023 AT 4.42 PM TO 5.1
     Route: 042
     Dates: start: 20230210
  2. MYCOPHENOLATE MOFETIL [Suspect]
     Active Substance: MYCOPHENOLATE MOFETIL
     Indication: Lupus nephritis
     Route: 048
     Dates: start: 20230210
  3. MYCOPHENOLATE MOFETIL [Suspect]
     Active Substance: MYCOPHENOLATE MOFETIL
     Dosage: START DATE OF MOST RECENT DOSE OF STUDY DRUG PRIOR TO AE- 27/MAR/2023, 12/APR/2023, 14/APR/2023
     Route: 048
  4. LEVOTHYROXINE SODIUM [Concomitant]
     Active Substance: LEVOTHYROXINE SODIUM
     Indication: Thyroid neoplasm
     Dosage: SUBSEQUENT DOSE 0.25 UG ORAL, ONCE A DAY ON /JUN/2018
     Route: 048
     Dates: start: 201806, end: 20230418
  5. LEVOTHYROXINE SODIUM [Concomitant]
     Active Substance: LEVOTHYROXINE SODIUM
     Route: 048
     Dates: start: 20230418, end: 20230419
  6. CALCITRIOL [Concomitant]
     Active Substance: CALCITRIOL
     Indication: Vitamin supplementation
     Route: 048
     Dates: start: 2016, end: 20230418
  7. SACUBITRIL\VALSARTAN [Concomitant]
     Active Substance: SACUBITRIL\VALSARTAN
     Indication: Hypertension
     Route: 048
     Dates: start: 20230211, end: 20230417
  8. PREDNISONE [Concomitant]
     Active Substance: PREDNISONE
     Route: 048
  9. METHOTREXATE [Concomitant]
     Active Substance: METHOTREXATE
     Route: 048
  10. METHYLPREDNISOLONE [Concomitant]
     Active Substance: METHYLPREDNISOLONE
     Indication: Lupus nephritis
     Route: 042
     Dates: start: 200607
  11. METHYLPREDNISOLONE [Concomitant]
     Active Substance: METHYLPREDNISOLONE
     Route: 048
     Dates: start: 20230225, end: 20230225
  12. METHYLPREDNISOLONE [Concomitant]
     Active Substance: METHYLPREDNISOLONE
     Dosage: SUBSEQUENT DOSE 20 MG FROM 26/FEB/2023 TO 19/MAR/2023, 16 MG ORAL FROM 20/MAR/2023 TO 06/APR/2023, 1
     Route: 048
     Dates: start: 20230226, end: 20230309
  13. METHYLPREDNISOLONE [Concomitant]
     Active Substance: METHYLPREDNISOLONE
     Route: 048
     Dates: start: 2006, end: 20230225
  14. METHYLPREDNISOLONE [Concomitant]
     Active Substance: METHYLPREDNISOLONE
     Route: 048
     Dates: start: 20230407, end: 20230417
  15. CYCLOSPORINE [Concomitant]
     Active Substance: CYCLOSPORINE
     Indication: Lupus nephritis
     Dates: start: 200701
  16. TACROLIMUS [Concomitant]
     Active Substance: TACROLIMUS
     Indication: Lupus nephritis
  17. SIROLIMUS [Concomitant]
     Active Substance: SIROLIMUS
     Indication: Lupus nephritis
     Dates: start: 2021
  18. AZATHIOPRINE [Concomitant]
     Active Substance: AZATHIOPRINE
     Indication: Lupus nephritis
     Dates: start: 2021
  19. ESOMEPRAZOLE SODIUM [Concomitant]
     Active Substance: ESOMEPRAZOLE SODIUM
     Indication: Nausea
     Route: 042
     Dates: start: 20230416, end: 20230422
  20. ESOMEPRAZOLE SODIUM [Concomitant]
     Active Substance: ESOMEPRAZOLE SODIUM
     Indication: Vomiting
  21. AMBROXOL HYDROCHLORIDE [Concomitant]
     Active Substance: AMBROXOL HYDROCHLORIDE
     Indication: Productive cough
     Route: 055
     Dates: start: 20230417, end: 20230422
  22. AMBROXOL HYDROCHLORIDE [Concomitant]
     Active Substance: AMBROXOL HYDROCHLORIDE
     Route: 055
     Dates: start: 20230416, end: 20230416
  23. AMBROXOL HYDROCHLORIDE [Concomitant]
     Active Substance: AMBROXOL HYDROCHLORIDE
     Route: 055
     Dates: start: 20230417, end: 20230422
  24. DOXOFYLLINE [Concomitant]
     Active Substance: DOXOFYLLINE
     Route: 042
     Dates: start: 20230416, end: 20230416
  25. DOXOFYLLINE [Concomitant]
     Active Substance: DOXOFYLLINE
     Route: 042
     Dates: start: 20230417, end: 20230422
  26. BUDESONIDE [Concomitant]
     Active Substance: BUDESONIDE
     Indication: Productive cough
     Route: 055
     Dates: start: 20230417, end: 20230422
  27. BIAPENEM [Concomitant]
     Active Substance: BIAPENEM
     Route: 042
     Dates: start: 20230416, end: 20230416
  28. BIAPENEM [Concomitant]
     Active Substance: BIAPENEM
     Route: 042
     Dates: start: 20230417, end: 20230418
  29. BIAPENEM [Concomitant]
     Active Substance: BIAPENEM
     Route: 042
     Dates: start: 20230419, end: 20230421
  30. METHYLPREDNISOLONE SODIUM SUCCINATE [Concomitant]
     Active Substance: METHYLPREDNISOLONE SODIUM SUCCINATE
     Indication: Lupus nephritis
     Route: 042
     Dates: start: 20230417, end: 20230417
  31. METHYLPREDNISOLONE SODIUM SUCCINATE [Concomitant]
     Active Substance: METHYLPREDNISOLONE SODIUM SUCCINATE
     Route: 042
     Dates: start: 20230418, end: 20230419
  32. METHYLPREDNISOLONE SODIUM SUCCINATE [Concomitant]
     Active Substance: METHYLPREDNISOLONE SODIUM SUCCINATE
     Route: 042
     Dates: start: 20230420, end: 20230420
  33. METHYLPREDNISOLONE SODIUM SUCCINATE [Concomitant]
     Active Substance: METHYLPREDNISOLONE SODIUM SUCCINATE
     Route: 042
     Dates: start: 20230421, end: 20230421
  34. METHYLPREDNISOLONE SODIUM SUCCINATE [Concomitant]
     Active Substance: METHYLPREDNISOLONE SODIUM SUCCINATE
     Route: 042
     Dates: start: 20230422, end: 20230422
  35. GANCICLOVIR [Concomitant]
     Active Substance: GANCICLOVIR
     Route: 042
     Dates: start: 20230417, end: 20230417
  36. PENCICLOVIR [Concomitant]
     Active Substance: PENCICLOVIR
     Route: 042
     Dates: start: 20230417, end: 20230422
  37. SODIUM BICARBONATE [Concomitant]
     Active Substance: SODIUM BICARBONATE
     Indication: Renal failure
     Route: 048
     Dates: start: 20230418, end: 20230422
  38. SODIUM BICARBONATE [Concomitant]
     Active Substance: SODIUM BICARBONATE
     Route: 042
     Dates: start: 20230422, end: 20230422
  39. NADROPARIN CALCIUM [Concomitant]
     Active Substance: NADROPARIN CALCIUM
     Indication: Lupus nephritis
     Route: 058
     Dates: start: 20230419, end: 20230422
  40. NADROPARIN CALCIUM [Concomitant]
     Active Substance: NADROPARIN CALCIUM
     Indication: Thrombosis prophylaxis
  41. THYMALFASIN [Concomitant]
     Active Substance: THYMALFASIN
     Route: 042
     Dates: start: 20230419, end: 20230422
  42. IBUPROFEN [Concomitant]
     Active Substance: IBUPROFEN
     Route: 042
     Dates: start: 20230417, end: 20230417
  43. IBUPROFEN [Concomitant]
     Active Substance: IBUPROFEN
     Route: 042
     Dates: start: 20230418, end: 20230418
  44. IBUPROFEN [Concomitant]
     Active Substance: IBUPROFEN
     Route: 042
     Dates: start: 20230420, end: 20230421
  45. INSULIN NOS [Concomitant]
     Active Substance: INSULIN NOS
     Indication: Hyperkalaemia
     Route: 042
     Dates: start: 20230417, end: 20230417
  46. INSULIN NOS [Concomitant]
     Active Substance: INSULIN NOS
     Route: 042
     Dates: start: 20230422, end: 20230422
  47. DEXTROSE [Concomitant]
     Active Substance: DEXTROSE\DEXTROSE MONOHYDRATE
     Indication: Hyperkalaemia
     Route: 042
     Dates: start: 20230417, end: 20230417
  48. DEXTROSE [Concomitant]
     Active Substance: DEXTROSE\DEXTROSE MONOHYDRATE
     Route: 042
     Dates: start: 20230422, end: 20230422
  49. FUROSEMIDE [Concomitant]
     Active Substance: FUROSEMIDE
     Indication: Dehydration
     Route: 042
     Dates: start: 20230417, end: 20230417
  50. FUROSEMIDE [Concomitant]
     Active Substance: FUROSEMIDE
     Indication: Polyuria
     Route: 042
     Dates: start: 20230418, end: 20230418
  51. FUROSEMIDE [Concomitant]
     Active Substance: FUROSEMIDE
     Route: 042
     Dates: start: 20230419, end: 20230419
  52. FUROSEMIDE [Concomitant]
     Active Substance: FUROSEMIDE
     Route: 042
     Dates: start: 20230421, end: 20230421
  53. FUROSEMIDE [Concomitant]
     Active Substance: FUROSEMIDE
     Route: 042
     Dates: start: 20230422, end: 20230422
  54. SODIUM POLYSTYRENE SULFONATE [Concomitant]
     Active Substance: SODIUM POLYSTYRENE SULFONATE
     Indication: Hyperkalaemia
     Dates: start: 20230418, end: 20230418
  55. IMIPENEM AND CILASTATIN SODIUM [Concomitant]
     Active Substance: CILASTATIN SODIUM\IMIPENEM
     Route: 042
     Dates: start: 20230421, end: 20230422
  56. NOREPINEPHRINE BITARTRATE [Concomitant]
     Active Substance: NOREPINEPHRINE BITARTRATE
     Indication: Hypotension
     Route: 042
     Dates: start: 20230422, end: 20230422
  57. HUMAN IMMUNOGLOBULIN G [Concomitant]
     Active Substance: HUMAN IMMUNOGLOBULIN G
     Route: 042
     Dates: start: 20230419, end: 20230422
  58. LEVALBUTEROL HYDROCHLORIDE [Concomitant]
     Active Substance: LEVALBUTEROL HYDROCHLORIDE
     Indication: Productive cough
     Dosage: PREVENTING ASTHMA
     Route: 055
     Dates: start: 20230417, end: 20230422
  59. CALCIUM ACETATE [Concomitant]
     Active Substance: CALCIUM ACETATE
     Dates: start: 20230416, end: 20230418
  60. HYDROXYCHLOROQUINE SULFATE [Concomitant]
     Active Substance: HYDROXYCHLOROQUINE SULFATE
     Indication: Lupus nephritis
     Dosage: MEDICATION ROUTE NASOGASTRIC
     Route: 048
     Dates: start: 20230418, end: 20230422
  61. HYDROXYCHLOROQUINE SULFATE [Concomitant]
     Active Substance: HYDROXYCHLOROQUINE SULFATE
     Route: 048
     Dates: start: 2016, end: 20230416
  62. HYDROXYCHLOROQUINE SULFATE [Concomitant]
     Active Substance: HYDROXYCHLOROQUINE SULFATE
     Route: 048
     Dates: start: 20230417, end: 20230417
  63. HYDROXYCHLOROQUINE SULFATE [Concomitant]
     Active Substance: HYDROXYCHLOROQUINE SULFATE
     Dates: start: 20230417, end: 20230417
  64. SULFAMETHOXAZOLE [Concomitant]
     Active Substance: SULFAMETHOXAZOLE
     Indication: Infection
     Dosage: QID
     Dates: start: 20230418, end: 20230418
  65. SULFAMETHOXAZOLE [Concomitant]
     Active Substance: SULFAMETHOXAZOLE
     Route: 048
     Dates: start: 20230416, end: 20230417
  66. SULFAMETHOXAZOLE [Concomitant]
     Active Substance: SULFAMETHOXAZOLE
     Dosage: NASOGASRIC
     Dates: start: 20230419, end: 20230422
  67. EPINEPHRINE HYDROCHLORIDE [Concomitant]
     Active Substance: EPINEPHRINE HYDROCHLORIDE
     Route: 042
     Dates: start: 20230422, end: 20230422
  68. EPINEPHRINE HYDROCHLORIDE [Concomitant]
     Active Substance: EPINEPHRINE HYDROCHLORIDE
     Route: 042
     Dates: start: 20230422, end: 20230422
  69. FEBUXOSTAT [Concomitant]
     Active Substance: FEBUXOSTAT
     Indication: Lupus nephritis
     Route: 048
     Dates: start: 20230211, end: 202304
  70. LIDOCAINE HYDROCHLORIDE [Concomitant]
     Active Substance: DEXTROSE MONOHYDRATE\EPINEPHRINE\EPINEPHRINE BITARTRATE\LIDOCAINE\LIDOCAINE HYDROCHLORIDE\LIDOCAINE
     Indication: Local anaesthesia
     Route: 065
     Dates: start: 20230422, end: 20230422
  71. LEVOTHYROXINE SODIUM [Concomitant]
     Active Substance: LEVOTHYROXINE SODIUM
     Dates: start: 20230418, end: 20230419

REACTIONS (4)
  - Pneumocystis jirovecii pneumonia [Fatal]
  - Respiratory failure [Fatal]
  - Sepsis [Not Recovered/Not Resolved]
  - Hyperkalaemia [Not Recovered/Not Resolved]

NARRATIVE: CASE EVENT DATE: 20230327
